FAERS Safety Report 7685050-4 (Version None)
Quarter: 2011Q3

REPORT INFORMATION
  Report Type: 
  Country: None (occurrence: None)
  Receive Date: 20110816
  Receipt Date: 20110803
  Transmission Date: 20111222
  Serious: No
  Sender: FDA-Public Use
  Company Number: US-B.I. PHARMACEUTICALS,INC./RIDGEFIELD-2011-BP-19164BP

PATIENT
  Age: 61 Year
  Sex: Male

DRUGS (15)
  1. CINNAMON [Concomitant]
     Indication: SUPPLEMENTATION THERAPY
     Dosage: 1000 MG
     Route: 048
  2. COQ10 [Concomitant]
     Indication: SUPPLEMENTATION THERAPY
     Dosage: 200 MG
     Route: 048
  3. MEGA RED [Concomitant]
     Indication: SUPPLEMENTATION THERAPY
     Route: 048
  4. CARDIO B [Concomitant]
     Indication: SUPPLEMENTATION THERAPY
     Route: 048
  5. PRADAXA [Suspect]
     Indication: ATRIAL FIBRILLATION
     Dosage: 300 MG
     Route: 048
     Dates: start: 20110401
  6. OSTEOBIFLEX [Concomitant]
     Indication: SUPPLEMENTATION THERAPY
     Route: 048
  7. CENTRUM SILVER [Concomitant]
     Indication: SUPPLEMENTATION THERAPY
     Route: 048
  8. NIACIN [Concomitant]
     Indication: SUPPLEMENTATION THERAPY
     Route: 048
  9. DILTIAZEM [Concomitant]
     Indication: HYPERTENSION
     Dosage: 240 MG
     Route: 048
  10. TESTOSTERONE [Concomitant]
     Indication: ANDROGEN DEFICIENCY
     Route: 030
  11. BLOOD PRESSURE FACTOR [Concomitant]
     Indication: SUPPLEMENTATION THERAPY
     Route: 048
  12. MELOXICAM [Concomitant]
     Indication: ARTHRITIS
     Dosage: 15 MG
     Route: 048
  13. OMEPRAZOLE [Concomitant]
     Indication: GASTROOESOPHAGEAL REFLUX DISEASE
     Dosage: 20 MG
     Route: 048
  14. FLAX OIL [Concomitant]
     Indication: SUPPLEMENTATION THERAPY
     Dosage: 2000 MG
     Route: 048
  15. CHERRY EXTRACT [Concomitant]
     Indication: SUPPLEMENTATION THERAPY
     Route: 048

REACTIONS (3)
  - PRURITUS [None]
  - RESTLESSNESS [None]
  - INSOMNIA [None]
